FAERS Safety Report 22030881 (Version 1)
Quarter: 2023Q1

REPORT INFORMATION
  Report Type: Spontaneous
  Country: JP (occurrence: JP)
  Receive Date: 20230223
  Receipt Date: 20230223
  Transmission Date: 20230418
  Serious: Yes (Other)
  Sender: FDA-Public Use
  Company Number: JP-PFIZER INC-PV202300033098

PATIENT

DRUGS (2)
  1. PAXLOVID [Interacting]
     Active Substance: NIRMATRELVIR\RITONAVIR
     Indication: COVID-19 treatment
     Dosage: UNK
  2. CLOZARIL [Interacting]
     Active Substance: CLOZAPINE
     Dosage: UNK

REACTIONS (2)
  - Altered state of consciousness [Recovering/Resolving]
  - Drug interaction [Unknown]
